FAERS Safety Report 9363138 (Version 1)
Quarter: 2013Q2

REPORT INFORMATION
  Report Type: Spontaneous
  Country: CA (occurrence: CA)
  Receive Date: 20130624
  Receipt Date: 20130624
  Transmission Date: 20140414
  Serious: Yes (Other)
  Sender: FDA-Public Use
  Company Number: CA-BIOGENIDEC-2013BI055009

PATIENT
  Age: 55 Year
  Sex: Male

DRUGS (1)
  1. AVONEX [Suspect]
     Indication: MULTIPLE SCLEROSIS
     Route: 030
     Dates: start: 20130507

REACTIONS (4)
  - Myocardial infarction [Unknown]
  - Abdominal pain upper [Recovered/Resolved]
  - Muscle tightness [Recovered/Resolved]
  - Dizziness [Recovered/Resolved]
